FAERS Safety Report 8377618-7 (Version None)
Quarter: 2012Q2

REPORT INFORMATION
  Report Type: 
  Country: None (occurrence: None)
  Receive Date: 20120522
  Receipt Date: 20120516
  Transmission Date: 20120825
  Serious: Yes (Hospitalization, Disabling)
  Sender: FDA-Public Use
  Company Number: FR-PFIZER INC-2012007733

PATIENT
  Age: 66 Year
  Sex: Female
  Weight: 50 kg

DRUGS (3)
  1. CACIT D3 [Concomitant]
     Route: 048
  2. ACTONEL [Concomitant]
     Dosage: 35 MG
     Route: 048
  3. VFEND [Suspect]
     Dosage: 200 MG, 2X/DAY
     Route: 048
     Dates: start: 20091114, end: 20110929

REACTIONS (1)
  - PERIPHERAL SENSORY NEUROPATHY [None]
